FAERS Safety Report 8832037 (Version 2)
Quarter: 2012Q4

REPORT INFORMATION
  Report Type: 
  Country: US (occurrence: US)
  Receive Date: 20121009
  Receipt Date: 20121105
  Transmission Date: 20130627
  Serious: No
  Sender: FDA-Public Use
  Company Number: US-PFIZER INC-2012243167

PATIENT
  Age: 73 Year
  Sex: Male

DRUGS (14)
  1. NEURONTIN [Suspect]
     Indication: OSTEOARTHRITIS
     Dosage: UNK
  2. NEURONTIN [Suspect]
     Dosage: UNK
  3. LYRICA [Interacting]
     Indication: OSTEOARTHRITIS
     Dosage: 50 mg, 1x/day
     Route: 048
     Dates: start: 20120928
  4. LYRICA [Interacting]
     Dosage: UNK
  5. LIPITOR [Interacting]
     Dosage: UNK
  6. NORVASC [Interacting]
     Dosage: UNK
  7. ALPRAZOLAM [Interacting]
     Dosage: UNK
  8. GABAPENTIN [Suspect]
     Dosage: UNK
  9. PREDNISONE [Interacting]
     Indication: OSTEOARTHRITIS
     Dosage: 10 mg, UNK
     Dates: start: 2010
  10. PREDNISONE [Interacting]
     Dosage: 10 mg, UNK
  11. PREDNISONE [Interacting]
     Dosage: 1 mg, 2x/day
  12. AVAPRO [Interacting]
     Dosage: UNK
  13. COUMADIN [Interacting]
     Dosage: UNK
  14. ASPIRIN [Interacting]
     Dosage: UNK

REACTIONS (12)
  - Off label use [Unknown]
  - Agitation [Unknown]
  - Abdominal discomfort [Unknown]
  - Drug ineffective [Unknown]
  - Constipation [Unknown]
  - Pollakiuria [Unknown]
  - Blood pressure increased [Unknown]
  - Energy increased [Unknown]
  - Drug interaction [Unknown]
  - Sexual dysfunction [Unknown]
  - Feeling abnormal [Unknown]
  - Dizziness [Unknown]
